FAERS Safety Report 13714016 (Version 1)
Quarter: 2017Q3

REPORT INFORMATION
  Report Type: Report from Study
  Country: None (occurrence: US)
  Receive Date: 20170704
  Receipt Date: 20170704
  Transmission Date: 20171127
  Serious: Yes (Other)
  Sender: FDA-Public Use
  Company Number: US-ABBVIE-17K-163-2025106-00

PATIENT
  Age: 56 Year
  Sex: Female

DRUGS (1)
  1. HUMIRA [Suspect]
     Active Substance: ADALIMUMAB
     Indication: CROHN^S DISEASE
     Route: 058
     Dates: start: 20170201

REACTIONS (6)
  - Loss of consciousness [Unknown]
  - Fall [Unknown]
  - Dehydration [Unknown]
  - Hypotension [Unknown]
  - Crohn^s disease [Unknown]
  - Ankle fracture [Unknown]

NARRATIVE: CASE EVENT DATE: 201706
